FAERS Safety Report 8024541-3 (Version None)
Quarter: 2012Q1

REPORT INFORMATION
  Report Type: 
  Country: None (occurrence: None)
  Receive Date: 20120105
  Receipt Date: 20120103
  Transmission Date: 20120608
  Serious: Yes (Hospitalization)
  Sender: FDA-Public Use
  Company Number: PHHO2011NL021426

PATIENT
  Sex: Female

DRUGS (2)
  1. LETROZOLE [Suspect]
     Indication: BREAST CANCER
     Dosage: 2.5 MG DAILY
     Route: 048
     Dates: start: 20060918
  2. LETROZOLE [Suspect]
     Dosage: 2.5 MG DAILY
     Route: 048
     Dates: start: 20080313

REACTIONS (3)
  - LIGAMENT RUPTURE [None]
  - ROTATOR CUFF SYNDROME [None]
  - CARPAL TUNNEL SYNDROME [None]
